FAERS Safety Report 5080941-5 (Version None)
Quarter: 2006Q3

REPORT INFORMATION
  Report Type: 
  Country: None (occurrence: None)
  Receive Date: 20060811
  Receipt Date: 20060804
  Transmission Date: 20061208
  Serious: Yes (Other)
  Sender: FDA-Public Use
  Company Number: APP200600221

PATIENT
  Age: 65 Year
  Sex: Female

DRUGS (4)
  1. FLUOROURACIL [Suspect]
     Dosage: CYCLICAL
  2. LEUCOVORIN CALCIUM [Suspect]
  3. ELOXATIN [Suspect]
  4. AVASTIN [Suspect]

REACTIONS (2)
  - HAEMOLYTIC ANAEMIA [None]
  - INTERSTITIAL LUNG DISEASE [None]
